FAERS Safety Report 6616350-4 (Version None)
Quarter: 2010Q1

REPORT INFORMATION
  Report Type: 
  Country: None (occurrence: None)
  Receive Date: 20100305
  Receipt Date: 20100222
  Transmission Date: 20100710
  Serious: No
  Sender: FDA-Public Use
  Company Number: US-B.I. PHARMACEUTICALS,INC./RIDGEFIELD-2010-BP-02188BP

PATIENT
  Age: 41 Year
  Sex: Male
  Weight: 55.8 kg

DRUGS (7)
  1. SPIRIVA [Suspect]
  2. ZICAM [Suspect]
     Indication: NASOPHARYNGITIS
  3. ZICAM [Suspect]
  4. ZICAM [Suspect]
  5. LOTREL [Concomitant]
  6. MULTI-VITAMIN [Concomitant]
  7. ASPIRIN [Concomitant]

REACTIONS (1)
  - HYPOSMIA [None]
